FAERS Safety Report 22183561 (Version 1)
Quarter: 2023Q2

REPORT INFORMATION
  Report Type: Spontaneous
  Country: JP (occurrence: JP)
  Receive Date: 20230406
  Receipt Date: 20230406
  Transmission Date: 20230721
  Serious: Yes (Hospitalization)
  Sender: FDA-Public Use
  Company Number: JP-JNJFOC-20211110491

PATIENT
  Age: 6 Decade
  Sex: Female

DRUGS (5)
  1. RISPERDAL [Suspect]
     Active Substance: RISPERIDONE
     Indication: Schizophrenia
     Dosage: DOSE UNKNOWN
     Route: 048
  2. RISPERIDONE [Suspect]
     Active Substance: RISPERIDONE
     Indication: Schizophrenia
     Dosage: DOSE UNKNOWN
     Route: 048
  3. CLONAZEPAM [Suspect]
     Active Substance: CLONAZEPAM
     Indication: Schizophrenia
     Dosage: DOSE UNKNOWN
     Route: 048
  4. LAMOTRIGINE [Concomitant]
     Active Substance: LAMOTRIGINE
     Indication: Schizophrenia
     Dosage: DOSE UNKNOWN
     Route: 048
  5. LAMOTRIGINE [Concomitant]
     Active Substance: LAMOTRIGINE
     Indication: Schizophrenia
     Dosage: DOSE UNKNOWNINCREASED
     Route: 048

REACTIONS (1)
  - Acute generalised exanthematous pustulosis [Recovering/Resolving]
